FAERS Safety Report 4269736-X (Version None)
Quarter: 2004Q1

REPORT INFORMATION
  Report Type: 
  Country: None (occurrence: None)
  Receive Date: 20040109
  Receipt Date: 20031230
  Transmission Date: 20041129
  Serious: Yes (Other)
  Sender: FDA-Public Use
  Company Number: 2003111740

PATIENT
  Age: 76 Year
  Sex: Female
  Weight: 61.2356 kg

DRUGS (3)
  1. LIPITOR [Suspect]
     Indication: BLOOD CHOLESTEROL INCREASED
     Dosage: 10 MG, DAILY, ORAL
     Route: 048
     Dates: start: 20010213, end: 20030914
  2. MULTIVITAMIN [Concomitant]
  3. NORTRIPTYLINE HCL [Concomitant]

REACTIONS (21)
  - AMNESIA [None]
  - ASTHENIA [None]
  - BACK PAIN [None]
  - BLOOD CHOLESTEROL INCREASED [None]
  - BLOOD CREATINE PHOSPHOKINASE INCREASED [None]
  - BONE DENSITY DECREASED [None]
  - BUTTOCK PAIN [None]
  - DIZZINESS [None]
  - DYSSTASIA [None]
  - FATIGUE [None]
  - FEAR [None]
  - HEART RATE IRREGULAR [None]
  - MACULAR DEGENERATION [None]
  - MEDICATION ERROR [None]
  - MIDDLE INSOMNIA [None]
  - MUSCLE ATROPHY [None]
  - MUSCULAR WEAKNESS [None]
  - MYALGIA [None]
  - OSTEOPOROSIS [None]
  - PAIN [None]
  - PAIN IN EXTREMITY [None]
